FAERS Safety Report 5627440-7 (Version None)
Quarter: 2008Q1

REPORT INFORMATION
  Report Type: 
  Country: None (occurrence: None)
  Receive Date: 20080215
  Receipt Date: 20080202
  Transmission Date: 20080703
  Serious: Yes (Hospitalization)
  Sender: FDA-Public Use
  Company Number: US-AMGEN-STX263848

PATIENT
  Sex: Female

DRUGS (1)
  1. ENBREL [Suspect]
     Indication: RHEUMATOID ARTHRITIS
     Route: 058
     Dates: start: 20060807

REACTIONS (4)
  - ARTHRITIS [None]
  - INTERVERTEBRAL DISC PROTRUSION [None]
  - RED BLOOD CELL SEDIMENTATION RATE INCREASED [None]
  - SPINAL LAMINECTOMY [None]
